FAERS Safety Report 19063371 (Version 2)
Quarter: 2021Q2

REPORT INFORMATION
  Report Type: Report from Study
  Country: CO (occurrence: CO)
  Receive Date: 20210326
  Receipt Date: 20210409
  Transmission Date: 20210717
  Serious: Yes (Hospitalization, Other)
  Sender: FDA-Public Use
  Company Number: NVSC2021CO056256

PATIENT
  Age: 11 Year
  Sex: Male
  Weight: 39 kg

DRUGS (2)
  1. REVOLADE [Suspect]
     Active Substance: ELTROMBOPAG OLAMINE
     Indication: IMMUNE THROMBOCYTOPENIA
     Dosage: 25 MG, QD
     Route: 048
     Dates: start: 20210108
  2. NEORAL [Suspect]
     Active Substance: CYCLOSPORINE
     Indication: ANTICOAGULANT THERAPY
     Dosage: 50 MG, Q12H
     Route: 048
     Dates: start: 20201220

REACTIONS (9)
  - Aplastic anaemia [Unknown]
  - General physical health deterioration [Unknown]
  - Petechiae [Recovered/Resolved]
  - Malaise [Unknown]
  - Platelet count decreased [Recovering/Resolving]
  - Product supply issue [Unknown]
  - Thrombocytopenia [Unknown]
  - Gingival bleeding [Recovered/Resolved]
  - Product use in unapproved indication [Unknown]

NARRATIVE: CASE EVENT DATE: 20210308
